FAERS Safety Report 22541913 (Version 1)
Quarter: 2023Q2

REPORT INFORMATION
  Report Type: Spontaneous
  Country: US (occurrence: US)
  Receive Date: 20230609
  Receipt Date: 20230609
  Transmission Date: 20230722
  Serious: No
  Sender: FDA-Public Use
  Company Number: US-009507513-2306USA004524

PATIENT
  Sex: Female

DRUGS (2)
  1. LENVATINIB MESYLATE [Suspect]
     Active Substance: LENVATINIB MESYLATE
     Indication: Uterine cancer
     Dosage: 10 MILLIGRAM
     Route: 048
     Dates: start: 20230503
  2. KEYTRUDA [Suspect]
     Active Substance: PEMBROLIZUMAB
     Indication: Uterine cancer
     Dosage: UNK
     Dates: start: 20230503

REACTIONS (7)
  - Headache [Unknown]
  - Fatigue [Unknown]
  - Hypertension [Unknown]
  - Rash [Recovered/Resolved]
  - Exfoliative rash [Unknown]
  - Rash pruritic [Unknown]
  - Urticaria [Recovered/Resolved]
